FAERS Safety Report 14236234 (Version 3)
Quarter: 2018Q1

REPORT INFORMATION
  Report Type: Report from Study
  Country: FR (occurrence: FR)
  Receive Date: 20171129
  Receipt Date: 20180109
  Transmission Date: 20180508
  Serious: Yes (Life-Threatening, Hospitalization, Other)
  Sender: FDA-Public Use
  Company Number: FR-TESARO, INC-FR-2017TSO04132

PATIENT

DRUGS (8)
  1. ORACILLINE                         /00001805/ [Concomitant]
     Active Substance: PENICILLIN V BENZATHINE
     Indication: SPLENECTOMY
     Dosage: UNK, BID
     Route: 048
     Dates: start: 20110706
  2. XARELTO [Concomitant]
     Active Substance: RIVAROXABAN
     Indication: PRODUCT USED FOR UNKNOWN INDICATION
     Dosage: 20 MG, UNK
     Route: 048
     Dates: end: 20171117
  3. LYSANXIA [Concomitant]
     Active Substance: PRAZEPAM
     Indication: DEPRESSION
     Dosage: UNK, QD
     Route: 048
  4. ACTISKENAN [Concomitant]
     Active Substance: MORPHINE SULFATE
     Indication: PAIN
     Dosage: 30 MG, PRN
     Route: 048
  5. NIRAPARIB [Suspect]
     Active Substance: NIRAPARIB
     Indication: OVARIAN CANCER
     Dosage: 300 MG, QD
     Route: 048
     Dates: start: 20171110, end: 20171116
  6. ABILIFY [Concomitant]
     Active Substance: ARIPIPRAZOLE
     Indication: DEPRESSION
     Dosage: 5 MG, QD
     Route: 048
  7. PROZAC [Concomitant]
     Active Substance: FLUOXETINE HYDROCHLORIDE
     Indication: DEPRESSION
     Dosage: 20 MG, TID
     Route: 048
  8. PARACETAMOL [Concomitant]
     Active Substance: ACETAMINOPHEN
     Indication: PAIN
     Dosage: 1 G, PRN
     Route: 048

REACTIONS (10)
  - Thrombocytopenia [Not Recovered/Not Resolved]
  - Cerebral haemorrhage [Recovered/Resolved with Sequelae]
  - Photophobia [Unknown]
  - Epilepsy [Unknown]
  - Myelodysplastic syndrome [Not Recovered/Not Resolved]
  - Acute pulmonary oedema [Unknown]
  - Headache [Unknown]
  - Hypertension [Recovered/Resolved with Sequelae]
  - Metastases to central nervous system [Unknown]
  - Vomiting [Unknown]

NARRATIVE: CASE EVENT DATE: 20171115
